FAERS Safety Report 16632209 (Version 1)
Quarter: 2019Q3

REPORT INFORMATION
  Report Type: Spontaneous
  Country: US (occurrence: US)
  Receive Date: 20190725
  Receipt Date: 20190725
  Transmission Date: 20191004
  Serious: No
  Sender: FDA-Public Use
  Company Number: US-ABBVIE-18S-163-2466367-00

PATIENT
  Sex: Female

DRUGS (2)
  1. SYNTHROID [Suspect]
     Active Substance: LEVOTHYROXINE SODIUM
     Indication: PRODUCT USED FOR UNKNOWN INDICATION
     Route: 065
  2. TIROSINT [Suspect]
     Active Substance: LEVOTHYROXINE SODIUM
     Indication: HYPOTHYROIDISM
     Route: 048
     Dates: start: 201806

REACTIONS (11)
  - Parosmia [Unknown]
  - Diarrhoea haemorrhagic [Unknown]
  - Allergy to metals [Unknown]
  - Malabsorption [Unknown]
  - Multiple allergies [Unknown]
  - Joint stiffness [Unknown]
  - Hypersensitivity [Unknown]
  - Device issue [Unknown]
  - Headache [Unknown]
  - Weight loss poor [Recovering/Resolving]
  - Muscle spasms [Unknown]
